FAERS Safety Report 8455319-4 (Version None)
Quarter: 2012Q2

REPORT INFORMATION
  Report Type: 
  Country: None (occurrence: None)
  Receive Date: 20120621
  Receipt Date: 20120618
  Transmission Date: 20120825
  Serious: Yes (Disabling, Other)
  Sender: FDA-Public Use
  Company Number: JP-PFIZER INC-2012146534

PATIENT
  Sex: Female

DRUGS (6)
  1. ISOSORBIDE DINITRATE [Suspect]
     Route: 062
  2. CANDESARTAN CILEXETIL [Suspect]
  3. VERAPAMIL HCL [Suspect]
  4. SPIRONOLACTONE [Suspect]
  5. NORVASC [Suspect]
     Route: 048
  6. CIBENOL [Suspect]

REACTIONS (7)
  - HYPERTENSION [None]
  - PNEUMONIA [None]
  - ANGINA PECTORIS [None]
  - HYPOXIC-ISCHAEMIC ENCEPHALOPATHY [None]
  - ARRHYTHMIA [None]
  - RESPIRATORY DISORDER [None]
  - VENTRICULAR EXTRASYSTOLES [None]
